FAERS Safety Report 7676622-1 (Version None)
Quarter: 2011Q3

REPORT INFORMATION
  Report Type: 
  Country: None (occurrence: None)
  Receive Date: 20110811
  Receipt Date: 20110803
  Transmission Date: 20111222
  Serious: Yes (Hospitalization, Other)
  Sender: FDA-Public Use
  Company Number: US-ASTELLAS-2011US002969

PATIENT
  Sex: Male

DRUGS (27)
  1. ERLOTINIB HYDROCHLORIDE [Suspect]
     Indication: LIP AND/OR ORAL CAVITY CANCER
     Dosage: 150 MG, UID/QD
     Route: 048
     Dates: start: 20110412, end: 20110502
  2. ERLOTINIB HYDROCHLORIDE [Suspect]
     Dosage: 100 MG, UID/QD
     Route: 048
     Dates: start: 20110503, end: 20110508
  3. ERLOTINIB HYDROCHLORIDE [Suspect]
     Dosage: 100 MG, UID/QD
     Route: 048
     Dates: start: 20110511, end: 20110529
  4. DOCETAXEL [Suspect]
     Indication: LIP AND/OR ORAL CAVITY CANCER
     Dosage: 75 MG/M2, WEEKLY
     Route: 042
     Dates: start: 20110412, end: 20110412
  5. DOCETAXEL [Suspect]
     Dosage: 75 MG/M2, WEEKLY
     Route: 042
     Dates: start: 20110503, end: 20110503
  6. HYDROCODONE [Concomitant]
  7. BACLOFEN [Concomitant]
     Indication: PRODUCT USED FOR UNKNOWN INDICATION
     Dosage: 10 MG, TID, PRN
     Route: 048
  8. PROCHLORPERAZINE MALEATE [Concomitant]
     Indication: VOMITING
  9. ERLOTINIB HYDROCHLORIDE [Suspect]
     Dosage: 100 MG, UID/QD
     Route: 048
     Dates: start: 20110601, end: 20110625
  10. METHYLDOPA [Concomitant]
     Indication: OROPHARYNGEAL PAIN
     Dosage: 30 ML, QID
  11. DOCETAXEL [Suspect]
     Dosage: 75 MG/M2, WEEKLY
     Route: 042
     Dates: start: 20110525, end: 20110525
  12. CISPLATIN [Suspect]
     Dosage: 75 MG/M2, WEEKLY
     Route: 042
     Dates: start: 20110525, end: 20110525
  13. DILAUDID [Concomitant]
     Indication: DISCOMFORT
     Dosage: UNK  PRN
     Route: 048
  14. DIPHENOXYLATE HCL + ATROPINE SULFATE [Concomitant]
     Indication: PRODUCT USED FOR UNKNOWN INDICATION
     Dosage: 1 DF, Q6 HOURS,PRN
     Route: 061
  15. CISPLATIN [Suspect]
     Dosage: 60 MG/M2, WEEKLY
     Route: 042
     Dates: start: 20110707, end: 20110707
  16. METHYLDOPA [Concomitant]
     Indication: COUGH
  17. PROCHLORPERAZINE MALEATE [Concomitant]
     Indication: NAUSEA
     Dosage: 10 MG, Q6 HOURS, PRN
     Route: 048
  18. REGLAN [Concomitant]
  19. DOCETAXEL [Suspect]
     Dosage: 75 MG/M2, WEEKLY
     Route: 042
     Dates: start: 20110615, end: 20110615
  20. DOCETAXEL [Suspect]
     Dosage: 75 MG/M2, WEEKLY
     Route: 042
     Dates: start: 20110707, end: 20110707
  21. CISPLATIN [Suspect]
     Indication: LIP AND/OR ORAL CAVITY CANCER
     Dosage: 75 MG/M2, WEEKLY
     Route: 042
     Dates: start: 20110412, end: 20110412
  22. CISPLATIN [Suspect]
     Dosage: 75 MG/M2, WEEKLY
     Route: 042
     Dates: start: 20110503, end: 20110503
  23. CISPLATIN [Suspect]
     Dosage: 75 MG/M2, WEEKLY
     Route: 042
     Dates: start: 20110615, end: 20110615
  24. ONDANSETRON [Concomitant]
     Indication: NAUSEA
     Dosage: 8 MG, PRN
     Route: 048
  25. ERLOTINIB HYDROCHLORIDE [Suspect]
     Dosage: 100 MG, UID/QD
     Route: 048
     Dates: start: 20110706
  26. ONDANSETRON [Concomitant]
     Indication: VOMITING
  27. HYDROCODONE W/HOMATROPINE [Concomitant]
     Indication: COUGH
     Dosage: UNK, PRN
     Route: 048

REACTIONS (19)
  - PNEUMONIA [None]
  - DEVICE MALFUNCTION [None]
  - HYPOTENSION [None]
  - NAUSEA [None]
  - LEUKOPENIA [None]
  - HYPOALBUMINAEMIA [None]
  - HYPOCALCAEMIA [None]
  - VOMITING [None]
  - HYPOKALAEMIA [None]
  - POSTOPERATIVE WOUND INFECTION [None]
  - DIARRHOEA [None]
  - DEHYDRATION [None]
  - WEIGHT DECREASED [None]
  - HYPONATRAEMIA [None]
  - HYPOMAGNESAEMIA [None]
  - ERYTHEMA [None]
  - RASH [None]
  - MALNUTRITION [None]
  - ANAEMIA [None]
